FAERS Safety Report 22138552 (Version 1)
Quarter: 2023Q1

REPORT INFORMATION
  Report Type: Spontaneous
  Country: US (occurrence: None)
  Receive Date: 20230326
  Receipt Date: 20230326
  Transmission Date: 20230417
  Serious: No
  Sender: FDA-Public Use
  Company Number: 2023A048933

PATIENT
  Sex: Female

DRUGS (1)
  1. SYMBICORT [Suspect]
     Active Substance: BUDESONIDE\FORMOTEROL FUMARATE DIHYDRATE
     Dosage: 160, TWO PUFFS A DAY
     Route: 055

REACTIONS (5)
  - Cough [Unknown]
  - Intentional device use issue [Unknown]
  - Device use issue [Unknown]
  - Device defective [Unknown]
  - Device delivery system issue [Unknown]
